FAERS Safety Report 9655488 (Version 2)
Quarter: 2013Q4

REPORT INFORMATION
  Report Type: Spontaneous
  Country: US (occurrence: US)
  Receive Date: 20131029
  Receipt Date: 20131029
  Transmission Date: 20140711
  Serious: No
  Sender: FDA-Public Use
  Company Number: US-PURDUE-USA-2010-0062553

PATIENT
  Sex: Female
  Weight: 55.33 kg

DRUGS (1)
  1. OXYCONTIN (NDA 22-272) [Suspect]
     Indication: PAIN
     Dosage: 10 MG, DAILY
     Route: 048
     Dates: start: 201009, end: 20110107

REACTIONS (8)
  - Pain [Unknown]
  - Agitation [Unknown]
  - Inadequate analgesia [Unknown]
  - Disturbance in attention [Recovered/Resolved]
  - Amnesia [Recovered/Resolved]
  - Mental impairment [Recovered/Resolved]
  - Drug ineffective [Unknown]
  - Thinking abnormal [Unknown]
